FAERS Safety Report 9167332 (Version 1)
Quarter: 2013Q1

REPORT INFORMATION
  Report Type: Spontaneous
  Country: CA (occurrence: None)
  Receive Date: 20130307
  Receipt Date: 20130307
  Transmission Date: 20140127
  Serious: No
  Sender: FDA-Public Use
  Company Number: S13001268

PATIENT
  Age: 58 Year
  Sex: Male
  Weight: 82.99 kg

DRUGS (5)
  1. COVERSYL [Suspect]
     Indication: PRODUCT USED FOR UNKNOWN INDICATION
     Route: 048
  2. LEVEMIR (INSULIN DETEMIR) [Concomitant]
  3. NOVORAPID (INSULIN ASPART) [Concomitant]
  4. LIPITOR (ATORVASTATIN CALCIUM) [Concomitant]
  5. IMODIUM (LOPERAMIDE HYDROCHLORIDE) [Concomitant]

REACTIONS (1)
  - Hallucinations, mixed [None]
